FAERS Safety Report 25886297 (Version 1)
Quarter: 2025Q4

REPORT INFORMATION
  Report Type: Spontaneous
  Country: KG (occurrence: KG)
  Receive Date: 20251006
  Receipt Date: 20251006
  Transmission Date: 20260118
  Serious: Yes (Other)
  Sender: AMGEN
  Company Number: KG-AMGEN-KGZSP2025195565

PATIENT
  Age: 32 Year
  Sex: Female

DRUGS (1)
  1. CINACALCET HYDROCHLORIDE [Suspect]
     Active Substance: CINACALCET HYDROCHLORIDE
     Indication: Hyperparathyroidism
     Dosage: 30 MILLIGRAM, BID
     Route: 065

REACTIONS (8)
  - Metastases to bone [Unknown]
  - Parathyroid tumour benign [Unknown]
  - Chronic kidney disease-mineral and bone disorder [Unknown]
  - Humerus fracture [Unknown]
  - Kyphoscoliosis [Unknown]
  - Brown tumour [Unknown]
  - Blood calcium decreased [Unknown]
  - Asthenia [Unknown]
